FAERS Safety Report 7815119-2 (Version None)
Quarter: 2011Q4

REPORT INFORMATION
  Report Type: 
  Country: None (occurrence: None)
  Receive Date: 20111014
  Receipt Date: 20111004
  Transmission Date: 20120403
  Serious: Yes (Disabling)
  Sender: FDA-Public Use
  Company Number: US-JNJFOC-20070107845

PATIENT
  Sex: Female
  Weight: 88.45 kg

DRUGS (12)
  1. ANTIDEPRESSANTS [Suspect]
     Indication: CROHN'S DISEASE
  2. PREDNISONE [Suspect]
     Indication: CROHN'S DISEASE
  3. MESALAMINE [Suspect]
     Indication: CROHN'S DISEASE
  4. INFLIXIMAB [Suspect]
     Indication: CROHN'S DISEASE
     Route: 042
     Dates: start: 20031114
  5. PRILOSEC [Suspect]
     Indication: CROHN'S DISEASE
  6. VITAMIN B-12 [Suspect]
     Indication: CROHN'S DISEASE
  7. INFLIXIMAB [Suspect]
     Route: 042
     Dates: start: 20020101
  8. NARCOTIC ANALGESICS [Suspect]
     Indication: CROHN'S DISEASE
  9. ACIDOPHILUS [Suspect]
     Indication: CROHN'S DISEASE
  10. CALCIUM CARBONATE [Suspect]
     Indication: CROHN'S DISEASE
  11. BUDESONIDE [Suspect]
     Indication: CROHN'S DISEASE
  12. IRON [Suspect]
     Indication: CROHN'S DISEASE

REACTIONS (3)
  - OSTEOMYELITIS FUNGAL [None]
  - RENAL FAILURE ACUTE [None]
  - CROHN'S DISEASE [None]
